FAERS Safety Report 7957756-0 (Version None)
Quarter: 2011Q4

REPORT INFORMATION
  Report Type: 
  Country: None (occurrence: None)
  Receive Date: 20111205
  Receipt Date: 20111202
  Transmission Date: 20120403
  Serious: Yes (Death, Other)
  Sender: FDA-Public Use
  Company Number: PHFR2010GB05402

PATIENT
  Sex: Male
  Weight: 148 kg

DRUGS (6)
  1. HYOSCINE [Concomitant]
  2. CLOZARIL [Suspect]
     Indication: SCHIZOPHRENIA
     Dosage: UNK UKN, UNK
     Route: 048
     Dates: start: 20100713
  3. BENZODIAZEPINES [Concomitant]
  4. METHADONE HCL [Concomitant]
     Dosage: 30 MG, UNK
  5. LORAZEPAM [Concomitant]
  6. DIAZEPAM [Concomitant]
     Route: 048

REACTIONS (9)
  - PNEUMONIA [None]
  - PRODUCTIVE COUGH [None]
  - SELF-INJURIOUS IDEATION [None]
  - SEPSIS [None]
  - ANTIPSYCHOTIC DRUG LEVEL INCREASED [None]
  - OBESITY [None]
  - AGGRESSION [None]
  - AGRANULOCYTOSIS [None]
  - AGITATION [None]
